FAERS Safety Report 9882366 (Version 5)
Quarter: 2014Q2

REPORT INFORMATION
  Report Type: Report from Study
  Country: IT (occurrence: IT)
  Receive Date: 20140207
  Receipt Date: 20140616
  Transmission Date: 20141212
  Serious: Yes (Hospitalization)
  Sender: FDA-Public Use
  Company Number: IT-VIIV HEALTHCARE LIMITED-B0949086B

PATIENT
  Age: 53 Year
  Sex: Male

DRUGS (12)
  1. DOLUTEGRAVIR [Suspect]
     Indication: HIV INFECTION
     Dates: start: 20130821
  2. CIPROFLOXACIN [Concomitant]
     Indication: ORCHITIS
     Dosage: 1000MG PER DAY
     Route: 048
     Dates: start: 20131106
  3. DARUNAVIR [Concomitant]
     Indication: HIV INFECTION
     Dosage: 600MG TWICE PER DAY
     Route: 048
     Dates: start: 20130821
  4. RITONAVIR [Concomitant]
     Indication: HIV INFECTION
     Dosage: 100MG TWICE PER DAY
     Route: 048
     Dates: start: 20130821
  5. LAMIVUDINE-HIV [Concomitant]
     Indication: HIV INFECTION
     Dosage: 300MG PER DAY
     Route: 048
     Dates: start: 20130821
  6. PREDNISONE [Concomitant]
     Indication: ORCHITIS
     Dosage: 25MG PER DAY
     Route: 048
     Dates: start: 20131212, end: 20131216
  7. PREDNISONE [Concomitant]
     Dosage: 12.5MG PER DAY
     Route: 048
     Dates: start: 20131217, end: 20131219
  8. PREDNISONE [Concomitant]
     Dosage: 6.25MG PER DAY
     Route: 048
     Dates: start: 20131220, end: 20131222
  9. PIPERACILLIN + TAZOBACTAM [Concomitant]
     Indication: ORCHITIS
     Dosage: 4.5G THREE TIMES PER DAY
     Route: 065
  10. LEVOFLOXACIN [Concomitant]
     Indication: ORCHITIS
     Dosage: 500MG PER DAY
     Route: 065
  11. MEROPENEM [Concomitant]
     Indication: ORCHITIS
     Dosage: 1G THREE TIMES PER DAY
     Route: 065
  12. VANCOMYCIN [Concomitant]
     Indication: ORCHITIS
     Dosage: 2G PER DAY
     Route: 065

REACTIONS (1)
  - Demyelinating polyneuropathy [Not Recovered/Not Resolved]
